FAERS Safety Report 12704278 (Version 1)
Quarter: 2016Q3

REPORT INFORMATION
  Report Type: Spontaneous
  Country: US (occurrence: US)
  Receive Date: 20160831
  Receipt Date: 20160831
  Transmission Date: 20161109
  Serious: Yes (Other)
  Sender: FDA-Public Use
  Company Number: PHEH2016US021949

PATIENT
  Age: 71 Year
  Sex: Male
  Weight: 62.6 kg

DRUGS (1)
  1. IMATINIB [Suspect]
     Active Substance: IMATINIB
     Indication: CHRONIC MYELOID LEUKAEMIA
     Dosage: 400 MG, QD
     Route: 048
     Dates: start: 20160824, end: 20160825

REACTIONS (2)
  - Rash pruritic [Unknown]
  - Chest pain [Unknown]

NARRATIVE: CASE EVENT DATE: 20160824
